FAERS Safety Report 14544822 (Version 2)
Quarter: 2018Q2

REPORT INFORMATION
  Report Type: Spontaneous
  Country: DE (occurrence: DE)
  Receive Date: 20180217
  Receipt Date: 20180510
  Transmission Date: 20180711
  Serious: Yes (Other)
  Sender: FDA-Public Use
  Company Number: DE-AUROBINDO-AUR-APL-2018-007685

PATIENT
  Age: 69 Year
  Sex: Male
  Weight: 75 kg

DRUGS (39)
  1. VALSARTAN AND HYDROCHLOROTHIAZIDE [Suspect]
     Active Substance: HYDROCHLOROTHIAZIDE\VALSARTAN
     Indication: PRODUCT USED FOR UNKNOWN INDICATION
     Dosage: ()
     Route: 065
  2. ALLOPURINOL. [Concomitant]
     Active Substance: ALLOPURINOL
     Dosage: 0.5 DF, UNK
     Route: 065
  3. HCT BETA [Concomitant]
     Active Substance: HYDROCHLOROTHIAZIDE
     Dosage: 12.5 MG, 1 TABLET
     Route: 065
  4. LOSARTAN CT [Concomitant]
     Indication: HYPERTENSION
     Dosage: 50 MG, 01 TABLET
     Route: 065
  5. MARCUMAR [Suspect]
     Active Substance: PHENPROCOUMON
     Indication: PULMONARY EMBOLISM
     Dosage: 3 MG,ACCORDING TO INR, TARGET INR: 1,5-2,0, (1/2-3/4 OF TABLET)
     Route: 048
     Dates: start: 2010
  6. NEUPRO [Concomitant]
     Active Substance: ROTIGOTINE
     Indication: RESTLESS LEGS SYNDROME
     Dosage: 6 MG, ONCE A DAY
     Route: 065
  7. LOSARTAN CT [Concomitant]
     Dosage: 50 MG, 01 TABLET
     Route: 065
  8. HCT [Concomitant]
     Active Substance: HYDROCHLOROTHIAZIDE
     Indication: PRODUCT USED FOR UNKNOWN INDICATION
     Dosage: 50 MG, QD
     Route: 048
     Dates: start: 2010
  9. JAKAVI [Suspect]
     Active Substance: RUXOLITINIB
     Dosage: 5 MG, QD
     Route: 048
     Dates: start: 201312
  10. ALLOPURINOL. [Concomitant]
     Active Substance: ALLOPURINOL
     Dosage: 1 DF, IN THE MORNING
     Route: 065
  11. HCT BETA [Concomitant]
     Active Substance: HYDROCHLOROTHIAZIDE
     Indication: HYPERTENSION
     Dosage: 0.5 DF,
     Route: 065
     Dates: start: 2002
  12. TORASEMIDE [Concomitant]
     Active Substance: TORSEMIDE
     Dosage: 0.5 DF, BID (10 MG)
     Route: 065
  13. VALSACOR [Concomitant]
     Active Substance: VALSARTAN
     Indication: HYPERTENSION
     Dosage: 0.5 DF, IN EVENING
     Route: 065
     Dates: start: 2005
  14. EXJADE [Suspect]
     Active Substance: DEFERASIROX
     Dosage: 750 MG, QD
     Route: 048
     Dates: start: 2012
  15. LOSARTAN. [Concomitant]
     Active Substance: LOSARTAN
     Indication: PRODUCT USED FOR UNKNOWN INDICATION
     Dosage: 12.5 MG, QD
     Route: 048
     Dates: start: 2010
  16. METOPROLOL. [Concomitant]
     Active Substance: METOPROLOL
     Indication: HYPERTENSION
     Dosage: 1 DF, IN MORNING
     Route: 065
     Dates: start: 2000
  17. BEPANTHEN                          /00178901/ [Concomitant]
     Active Substance: DEXPANTHENOL
     Indication: PRODUCT USED FOR UNKNOWN INDICATION
     Dosage: UNK, SEVERAL TIMES DAILY ()
     Route: 065
  18. HCT [Concomitant]
     Active Substance: HYDROCHLOROTHIAZIDE
     Dosage: 12.5 MG, QD (AS NECESSARY)
  19. EXJADE [Suspect]
     Active Substance: DEFERASIROX
     Dosage: 500 MG, BID (500 MG IN THE MORNING AND 500 MG IN THE EVENING)
     Route: 048
     Dates: start: 2013
  20. MARCUMAR [Suspect]
     Active Substance: PHENPROCOUMON
     Indication: DEEP VEIN THROMBOSIS
     Dosage: 1 TABLET PER DAY
     Route: 048
     Dates: start: 2006
  21. MARCUMAR [Suspect]
     Active Substance: PHENPROCOUMON
     Indication: ARRHYTHMIA
     Dosage: 1 TABLET PER DAY
     Route: 048
     Dates: start: 2004
  22. EUPHORBIUM COMP                    /07494301/ [Concomitant]
     Indication: PRODUCT USED FOR UNKNOWN INDICATION
     Dosage: A FEW TIMES A DAY ()
     Route: 065
  23. EXJADE [Suspect]
     Active Substance: DEFERASIROX
     Indication: HAEMOSIDEROSIS
     Dosage: 500 MG, BID
     Route: 048
  24. EXJADE [Suspect]
     Active Substance: DEFERASIROX
     Dosage: 500 MG, QD
     Route: 048
     Dates: start: 201312
  25. JAKAVI [Suspect]
     Active Substance: RUXOLITINIB
     Indication: MYELOFIBROSIS
     Dosage: 5 MG, ONCE A DAY
     Route: 048
     Dates: start: 20131015
  26. NEUPRO [Concomitant]
     Active Substance: ROTIGOTINE
     Dosage: 2 MG, PER 24 HOURS IN THE EVENING
  27. ALLOPURINOL. [Concomitant]
     Active Substance: ALLOPURINOL
     Dosage: 1 DF, IN THE MORNING
     Route: 065
  28. HCT BETA [Concomitant]
     Active Substance: HYDROCHLOROTHIAZIDE
     Dosage: 12.5 MG, PRN
     Route: 065
  29. EXJADE [Suspect]
     Active Substance: DEFERASIROX
     Indication: MYELODYSPLASTIC SYNDROME
     Dosage: 250 MG, BID
     Route: 048
     Dates: start: 201308
  30. EXJADE [Suspect]
     Active Substance: DEFERASIROX
     Dosage: 1500 MG, QD
     Route: 048
     Dates: start: 20131201
  31. EXJADE [Suspect]
     Active Substance: DEFERASIROX
     Dosage: 2000 MG, DAILY (1000 MG IN THE MORNING AND 1000 MG IN THE EVENING)
     Route: 048
  32. HYLO-COMOD [Concomitant]
     Active Substance: HYALURONATE SODIUM
     Dosage: UNK UKN, A FEW TIMES A DAY ()
     Route: 065
  33. ALLOPURINOL. [Concomitant]
     Active Substance: ALLOPURINOL
     Indication: PRODUCT USED FOR UNKNOWN INDICATION
     Dosage: 0.5 DF, UNK
     Route: 065
  34. ALLOPURINOL. [Concomitant]
     Active Substance: ALLOPURINOL
     Dosage: 100 MG, QD
     Route: 065
  35. TORASEMIDE [Concomitant]
     Active Substance: TORSEMIDE
     Indication: PRODUCT USED FOR UNKNOWN INDICATION
     Dosage: 0.5 DF, TWO TIMES A DAY
     Route: 065
  36. JAKAVI [Suspect]
     Active Substance: RUXOLITINIB
     Dosage: 5 MG, TWO TIMES A DAY ( (1 TABLET IN MORNING AND 1 TABLET IN EVENING)
     Route: 048
     Dates: start: 201310
  37. HYLO-COMOD [Concomitant]
     Active Substance: HYALURONATE SODIUM
     Indication: PRODUCT USED FOR UNKNOWN INDICATION
     Dosage: UNK UKN, A FEW TIMES A DAY ()
     Route: 065
  38. METOPROLOL. [Concomitant]
     Active Substance: METOPROLOL
     Dosage: 47.5 MG (1 TABLET)
  39. METOPROLOL. [Concomitant]
     Active Substance: METOPROLOL
     Dosage: 47.5 MG (1 TABLET)
     Route: 065

REACTIONS (10)
  - Restless legs syndrome [Not Recovered/Not Resolved]
  - Pericardial effusion [Recovered/Resolved]
  - Blood creatinine increased [Unknown]
  - Abscess [Not Recovered/Not Resolved]
  - Thrombocytopenia [Not Recovered/Not Resolved]
  - Weight increased [Unknown]
  - Pleural effusion [Recovered/Resolved]
  - White blood cell count decreased [Unknown]
  - Dyspnoea [Unknown]
  - Platelet count decreased [Unknown]

NARRATIVE: CASE EVENT DATE: 2013
